FAERS Safety Report 19462575 (Version 1)
Quarter: 2021Q2

REPORT INFORMATION
  Report Type: Report from Study
  Country: CA (occurrence: CA)
  Receive Date: 20210625
  Receipt Date: 20210625
  Transmission Date: 20210717
  Serious: Yes (Hospitalization, Other)
  Sender: FDA-Public Use
  Company Number: CA-HLS-202107546

PATIENT
  Age: 72 Year
  Sex: Female

DRUGS (1)
  1. CLOZARIL [Suspect]
     Active Substance: CLOZAPINE
     Dosage: 75 MG
     Route: 048
     Dates: start: 20180201

REACTIONS (6)
  - Cough [Recovered/Resolved]
  - Chest pain [Recovered/Resolved]
  - Dyspnoea [Recovered/Resolved]
  - Urinary tract infection [Recovered/Resolved]
  - Asthenia [Recovered/Resolved]
  - Breast abscess [Unknown]

NARRATIVE: CASE EVENT DATE: 20210512
